FAERS Safety Report 7867154-6 (Version None)
Quarter: 2011Q4

REPORT INFORMATION
  Report Type: 
  Country: None (occurrence: None)
  Receive Date: 20111028
  Receipt Date: 20111021
  Transmission Date: 20120403
  Serious: Yes (Hospitalization)
  Sender: FDA-Public Use
  Company Number: US-BRISTOL-MYERS SQUIBB COMPANY-14278345

PATIENT
  Age: 47 Year
  Sex: Male
  Weight: 163 kg

DRUGS (1)
  1. CISPLATIN [Suspect]
     Indication: HEAD AND NECK CANCER
     Dosage: START DATE 15MAY08. DATE OF COURSE ASSOCIATED WITH REPORT 26JUN08.
     Route: 042
     Dates: start: 20080605, end: 20080605

REACTIONS (1)
  - SALIVARY DUCT INFLAMMATION [None]
